FAERS Safety Report 19159365 (Version 2)
Quarter: 2021Q2

REPORT INFORMATION
  Report Type: Spontaneous
  Country: US (occurrence: US)
  Receive Date: 20210420
  Receipt Date: 20210520
  Transmission Date: 20210717
  Serious: No
  Sender: FDA-Public Use
  Company Number: US-AMGEN-USASP2021056371

PATIENT
  Age: 75 Year
  Sex: Female

DRUGS (2)
  1. REPATHA [Suspect]
     Active Substance: EVOLOCUMAB
     Indication: BLOOD CHOLESTEROL INCREASED
     Dosage: UNK
     Route: 065
     Dates: start: 2019
  2. REPATHA [Suspect]
     Active Substance: EVOLOCUMAB
     Dosage: 420 MILLIGRAM, QMO
     Route: 065

REACTIONS (16)
  - Peripheral swelling [Unknown]
  - Chest pain [Unknown]
  - Gastroenteritis [Unknown]
  - Back pain [Unknown]
  - Burning sensation [Unknown]
  - Product administered at inappropriate site [Unknown]
  - Dizziness [Unknown]
  - Nausea [Unknown]
  - Joint stiffness [Not Recovered/Not Resolved]
  - Fluid retention [Unknown]
  - Dyspnoea [Recovered/Resolved]
  - Accidental exposure to product [Unknown]
  - Hypoaesthesia [Unknown]
  - Weight increased [Unknown]
  - Injection site bruising [Unknown]
  - Hyperhidrosis [Unknown]

NARRATIVE: CASE EVENT DATE: 20201204
